FAERS Safety Report 16111039 (Version 1)
Quarter: 2019Q1

REPORT INFORMATION
  Report Type: Spontaneous
  Country: FR (occurrence: FR)
  Receive Date: 20190325
  Receipt Date: 20190325
  Transmission Date: 20190418
  Serious: Yes (Hospitalization)
  Sender: FDA-Public Use
  Company Number: FR-ACCORD-115509

PATIENT
  Age: 17 Year
  Sex: Male
  Weight: 82 kg

DRUGS (11)
  1. PARACETAMOL [Suspect]
     Active Substance: ACETAMINOPHEN
     Indication: PRODUCT USED FOR UNKNOWN INDICATION
     Dosage: 79 G, TOTAL
     Route: 048
     Dates: start: 20180701, end: 20180701
  2. TRIMEBUTINE [Suspect]
     Active Substance: TRIMEBUTINE
     Indication: PRODUCT USED FOR UNKNOWN INDICATION
     Dosage: 14000 MG, TOTAL
     Route: 048
     Dates: start: 20180701, end: 20180701
  3. SERESTA [Suspect]
     Active Substance: OXAZEPAM
     Indication: PRODUCT USED FOR UNKNOWN INDICATION
     Dosage: 310 MG, TOTAL
     Route: 048
     Dates: start: 20180701, end: 20180701
  4. AZITHROMYCIN ANHYDROUS. [Suspect]
     Active Substance: AZITHROMYCIN ANHYDROUS
     Indication: PRODUCT USED FOR UNKNOWN INDICATION
     Dosage: 1500 MG, TOTAL
     Route: 048
     Dates: start: 20180701, end: 20180701
  5. HEPATOUM [Suspect]
     Active Substance: DIETARY SUPPLEMENT\HERBALS
     Indication: PRODUCT USED FOR UNKNOWN INDICATION
     Dosage: UNSPECIFIED
     Route: 048
     Dates: start: 20180701, end: 20180701
  6. ESCITALOPRAM [Suspect]
     Active Substance: ESCITALOPRAM OXALATE
     Indication: PRODUCT USED FOR UNKNOWN INDICATION
     Dosage: OVERDOSE: 140 MG, 1 DAY
     Route: 048
     Dates: start: 20180701, end: 20180701
  7. ARESTAL [Suspect]
     Active Substance: LOPERAMIDE OXIDE
     Indication: PRODUCT USED FOR UNKNOWN INDICATION
     Dosage: 30 MG, TOTAL
     Route: 048
     Dates: start: 20180701, end: 20180701
  8. AUGMENTIN [Suspect]
     Active Substance: AMOXICILLIN\CLAVULANATE POTASSIUM
     Indication: PRODUCT USED FOR UNKNOWN INDICATION
     Dosage: 6 G, 1 DAY
     Route: 048
     Dates: start: 20180701, end: 20180701
  9. CEFPODOXIME/CEFPODOXIME PROXETIL [Suspect]
     Active Substance: CEFPODOXIME PROXETIL
     Indication: PRODUCT USED FOR UNKNOWN INDICATION
     Dosage: 2000 MG, TOTAL
     Route: 048
     Dates: start: 20180701, end: 20180701
  10. INORIAL [Suspect]
     Active Substance: BILASTINE
     Indication: PRODUCT USED FOR UNKNOWN INDICATION
     Dosage: 120 MG, TOTAL
     Route: 048
     Dates: start: 20180701, end: 20180701
  11. PREDNISOLONE. [Suspect]
     Active Substance: PREDNISOLONE
     Indication: PRODUCT USED FOR UNKNOWN INDICATION
     Dosage: 200 MG, TOTAL
     Route: 048
     Dates: start: 20180701, end: 20180701

REACTIONS (7)
  - Somnolence [Recovered/Resolved]
  - Suicide attempt [Unknown]
  - Vomiting [Recovered/Resolved]
  - Malaise [Recovered/Resolved]
  - Intentional overdose [Unknown]
  - Toxicity to various agents [Unknown]
  - Mydriasis [Recovered/Resolved]

NARRATIVE: CASE EVENT DATE: 20180701
